FAERS Safety Report 22594284 (Version 1)
Quarter: 2023Q2

REPORT INFORMATION
  Report Type: Spontaneous
  Country: US (occurrence: None)
  Receive Date: 20230612
  Receipt Date: 20230612
  Transmission Date: 20230721
  Serious: No
  Sender: FDA-Public Use
  Company Number: None

PATIENT
  Sex: Female

DRUGS (9)
  1. CAPECITABINE [Suspect]
     Active Substance: CAPECITABINE
     Indication: Breast cancer female
     Dosage: FREQUENCY : TWICE A DAY;?
     Route: 048
  2. MIRTAZAPINE [Concomitant]
     Active Substance: MIRTAZAPINE
  3. ONDANSETRON [Concomitant]
     Active Substance: ONDANSETRON
  4. LIDOCAINE [Concomitant]
     Active Substance: LIDOCAINE
  5. GABAPENTIN [Concomitant]
     Active Substance: GABAPENTIN
  6. ALPRAZOLAM [Concomitant]
     Active Substance: ALPRAZOLAM
  7. VITAMIN B12 [Concomitant]
  8. VITAMIN B6 [Concomitant]
     Active Substance: PYRIDOXINE HYDROCHLORIDE
  9. MEGESTROL [Concomitant]
     Active Substance: MEGESTROL

REACTIONS (2)
  - Breast cancer female [None]
  - Malignant neoplasm progression [None]
